FAERS Safety Report 5572818-3 (Version None)
Quarter: 2007Q4

REPORT INFORMATION
  Report Type: 
  Country: None (occurrence: None)
  Receive Date: 20071223
  Receipt Date: 20071217
  Transmission Date: 20080405
  Serious: Yes (Other)
  Sender: FDA-Public Use
  Company Number: PHEH2007US15871

PATIENT

DRUGS (1)
  1. TEKTURNA [Suspect]
     Dosage: 300 MG, QD
     Route: 048

REACTIONS (1)
  - MYOCLONIC EPILEPSY [None]
